FAERS Safety Report 5440911-1 (Version None)
Quarter: 2007Q3

REPORT INFORMATION
  Report Type: 
  Country: None (occurrence: None)
  Receive Date: 20070831
  Receipt Date: 20070822
  Transmission Date: 20080115
  Serious: Yes (Disabling, Other)
  Sender: FDA-Public Use
  Company Number: CA-PFIZER INC-2005120010

PATIENT
  Age: 63 Year
  Sex: Female

DRUGS (2)
  1. LIPITOR [Suspect]
     Route: 048
     Dates: start: 20030101, end: 20050601
  2. CELEBREX [Suspect]
     Indication: PAIN
     Dosage: DAILY DOSE:100MG
     Route: 065

REACTIONS (7)
  - BURSITIS [None]
  - DRUG INEFFECTIVE [None]
  - INSOMNIA [None]
  - MYALGIA [None]
  - PERIARTHRITIS [None]
  - PYREXIA [None]
  - RHEUMATOID ARTHRITIS [None]
